FAERS Safety Report 7084585-5 (Version None)
Quarter: 2010Q4

REPORT INFORMATION
  Report Type: 
  Country: None (occurrence: None)
  Receive Date: 20101104
  Receipt Date: 20101027
  Transmission Date: 20110411
  Serious: Yes (Other)
  Sender: FDA-Public Use
  Company Number: JP-PFIZER INC-2010132879

PATIENT
  Age: 63 Year
  Sex: Male

DRUGS (3)
  1. DALACIN [Suspect]
     Dosage: 600MG/DAY
     Route: 042
  2. CEFOPERAZONE SODIUM/SULBACTAM SODIUM [Suspect]
     Indication: INFECTION
     Dosage: 1G
     Route: 042
  3. IMIPENEM AND CILASTATIN SODIUM [Suspect]
     Indication: INFECTION

REACTIONS (1)
  - SUBDURAL HAEMATOMA [None]
